FAERS Safety Report 7651249-6 (Version None)
Quarter: 2011Q3

REPORT INFORMATION
  Report Type: 
  Country: None (occurrence: None)
  Receive Date: 20110802
  Receipt Date: 20110728
  Transmission Date: 20111222
  Serious: Yes (Hospitalization, Disabling, Other)
  Sender: FDA-Public Use
  Company Number: FR-PFIZER INC-2010116877

PATIENT
  Sex: Female

DRUGS (12)
  1. MEPRONIZINE [Suspect]
     Dosage: UNK
     Route: 048
  2. DIAZEPAM [Suspect]
     Dosage: 10 MG, UNK
  3. CITALOPRAM HYDROBROMIDE [Suspect]
     Dosage: 20 MG, UNK
     Route: 048
  4. ATARAX [Suspect]
     Dosage: 25 MG, UNK
     Route: 048
     Dates: end: 20100219
  5. TRIMEPRAZINE TARTRATE [Suspect]
     Indication: SLEEP DISORDER
     Dosage: 40 GTT, UNK
     Route: 048
  6. LEVOTHYROXINE SODIUM [Concomitant]
     Indication: HYPOTHYROIDISM
     Dosage: 15 UG, UNK
     Route: 048
  7. HALDOL [Suspect]
     Dosage: 10 GTT, UNK
     Route: 048
  8. NOVORAPID [Concomitant]
     Indication: DIABETES MELLITUS
     Dosage: 6 IU, UNK
     Route: 058
  9. INSULIN DETEMIR [Concomitant]
     Indication: DIABETES MELLITUS
     Dosage: 24 IU, UNK
     Route: 058
  10. ARICEPT [Suspect]
     Indication: DEMENTIA ALZHEIMER'S TYPE
     Dosage: 5 MG, UNK
     Route: 048
     Dates: end: 20100219
  11. MEMANTINE HCL [Suspect]
     Indication: DEMENTIA ALZHEIMER'S TYPE
     Dosage: 20 MG, UNK
     Route: 048
     Dates: end: 20100219
  12. FERROUS SULFATE TAB [Concomitant]
     Dosage: 80 MG, UNK
     Route: 048

REACTIONS (4)
  - HYPOGLYCAEMIA [None]
  - FALL [None]
  - DEMENTIA [None]
  - URINARY TRACT INFECTION [None]
